FAERS Safety Report 16635928 (Version 2)
Quarter: 2019Q3

REPORT INFORMATION
  Report Type: Report from Study
  Country: US (occurrence: RO)
  Receive Date: 20190726
  Receipt Date: 20190809
  Transmission Date: 20191004
  Serious: Yes (Hospitalization, Other)
  Sender: FDA-Public Use
  Company Number: US-SUNOVION-2019SUN003077

PATIENT

DRUGS (1)
  1. INDACATEROL AND GLYCOPYRROLATE [Suspect]
     Active Substance: GLYCOPYRROLATE\INDACATEROL MALEATE
     Indication: LUNG DISORDER
     Dosage: UNK
     Route: 065

REACTIONS (4)
  - Metastases to central nervous system [Unknown]
  - Hepatic cirrhosis [Unknown]
  - Lung disorder [Not Recovered/Not Resolved]
  - Product use in unapproved indication [Unknown]
